FAERS Safety Report 7257871-3 (Version None)
Quarter: 2011Q1

REPORT INFORMATION
  Report Type: 
  Country: None (occurrence: None)
  Receive Date: 20110129
  Receipt Date: 20100526
  Transmission Date: 20110831
  Serious: No
  Sender: FDA-Public Use
  Company Number: US-ABBOTT-10P-163-0647514-00

PATIENT
  Sex: Female
  Weight: 63.1 kg

DRUGS (5)
  1. PREDNISONE [Concomitant]
     Indication: RHEUMATOID ARTHRITIS
  2. DILTIAZEM [Concomitant]
     Indication: HYPERTENSION
  3. ARAVA [Concomitant]
     Indication: RHEUMATOID ARTHRITIS
  4. HUMIRA [Suspect]
     Indication: RHEUMATOID ARTHRITIS
     Dates: start: 20090713
  5. FOSAMAX [Concomitant]
     Indication: OSTEOPENIA

REACTIONS (1)
  - HERPES ZOSTER [None]
